FAERS Safety Report 5810499-1 (Version None)
Quarter: 2008Q3

REPORT INFORMATION
  Report Type: 
  Country: None (occurrence: None)
  Receive Date: 20080715
  Receipt Date: 20080703
  Transmission Date: 20090109
  Serious: Yes (Hospitalization)
  Sender: FDA-Public Use
  Company Number: GB-PFIZER INC-2008055808

PATIENT
  Age: 19 Year
  Sex: Female
  Weight: 77 kg

DRUGS (3)
  1. AZITHROMYCIN [Suspect]
     Indication: CHLAMYDIAL INFECTION
     Route: 048
     Dates: start: 20080614, end: 20080614
  2. MARVELON [Concomitant]
     Route: 048
  3. MICROGYNON [Concomitant]
     Route: 048
     Dates: start: 20070207, end: 20080607

REACTIONS (4)
  - ASTHMA [None]
  - DIPLOPIA [None]
  - NAUSEA [None]
  - SYNCOPE [None]
